FAERS Safety Report 23123503 (Version 1)
Quarter: 2023Q4

REPORT INFORMATION
  Report Type: Spontaneous
  Country: MX (occurrence: MX)
  Receive Date: 20231030
  Receipt Date: 20231030
  Transmission Date: 20240110
  Serious: Yes (Death, Other)
  Sender: FDA-Public Use
  Company Number: MX-ALKEM LABORATORIES LIMITED-MX-ALKEM-2023-13157

PATIENT
  Age: 68 Year
  Sex: Female

DRUGS (3)
  1. ITRACONAZOLE [Interacting]
     Active Substance: ITRACONAZOLE
     Indication: Acute myeloid leukaemia
     Dosage: 100 MILLIGRAM, BID (TWICE DAILY) FROM DAYS 1-21 (INDUCTION THERAPY)
     Route: 048
  2. AZACITIDINE [Interacting]
     Active Substance: AZACITIDINE
     Indication: Acute myeloid leukaemia
     Dosage: 100 MILLIGRAM, OD (ONCE A DAY) FROM DAYS 1-7 (INDUCTION THERAPY)
     Route: 058
  3. VENETOCLAX [Interacting]
     Active Substance: VENETOCLAX
     Indication: Acute myeloid leukaemia
     Dosage: 100 MILLIGRAM, OD (ONCE A DAY) LOW-DOSE FROM DAYS 1-21 MAXIMUM OF TWO 21-DAY CYCLES (INDUCTION THERA
     Route: 048

REACTIONS (4)
  - Central nervous system haemorrhage [Fatal]
  - Thrombocytopenia [Fatal]
  - Anaemia [Unknown]
  - Drug interaction [Unknown]
